FAERS Safety Report 25368281 (Version 3)
Quarter: 2025Q3

REPORT INFORMATION
  Report Type: Spontaneous
  Country: JP (occurrence: JP)
  Receive Date: 20250528
  Receipt Date: 20250702
  Transmission Date: 20251021
  Serious: Yes (Death, Hospitalization, Other)
  Sender: BAYER HEALTHCARE PHARMACEUTICALS INC.
  Company Number: JP-BAYER-2025A067951

PATIENT
  Age: 57 Year
  Sex: Male
  Weight: 72.4 kg

DRUGS (3)
  1. IOPROMIDE [Suspect]
     Active Substance: IOPROMIDE
     Indication: Colon cancer
     Route: 042
     Dates: start: 20250520, end: 20250520
  2. IOPROMIDE [Suspect]
     Active Substance: IOPROMIDE
     Indication: Metastases to liver
  3. IOPROMIDE [Suspect]
     Active Substance: IOPROMIDE
     Indication: Computerised tomogram

REACTIONS (9)
  - Anaphylactic shock [Fatal]
  - Blood pressure decreased [Fatal]
  - Dyspnoea [Fatal]
  - Cyanosis [Fatal]
  - Laryngeal oedema [Fatal]
  - Back pain [Unknown]
  - Purpura [None]
  - Dizziness [Unknown]
  - Tachypnoea [None]

NARRATIVE: CASE EVENT DATE: 20250520
